FAERS Safety Report 20333290 (Version 2)
Quarter: 2023Q2

REPORT INFORMATION
  Report Type: Spontaneous
  Country: FR (occurrence: None)
  Receive Date: 20220113
  Receipt Date: 20230602
  Transmission Date: 20230721
  Serious: Yes (Death, Hospitalization, Other)
  Sender: FDA-Public Use
  Company Number: None

PATIENT
  Age: 82 Year
  Sex: Female
  Weight: 53 kg

DRUGS (15)
  1. LEVOTHYROXINE [Suspect]
     Active Substance: LEVOTHYROXINE
     Indication: Hypothyroidism
     Dosage: 88 UG, QD
     Route: 048
  2. LEVOTHYROXINE [Suspect]
     Active Substance: LEVOTHYROXINE
     Route: 048
  3. TRIMEBUTINE [Suspect]
     Active Substance: TRIMEBUTINE
     Indication: Gastrointestinal motility disorder
     Dosage: 200 MG, QD
     Route: 048
  4. ALUMINUM HYDROXIDE\ALUMINUM PHOSPHATE\GUAR GUM\MAGNESIUM HYDROXIDE [Suspect]
     Active Substance: ALUMINUM HYDROXIDE\ALUMINUM PHOSPHATE\GUAR GUM\MAGNESIUM HYDROXIDE
     Indication: Hyperchlorhydria
     Dosage: DRINKABLE SUSPENSION IN SACHET-DOSE
     Route: 048
  5. ALPRAZOLAM [Suspect]
     Active Substance: ALPRAZOLAM
     Indication: Anxiety
     Dosage: 0.75 MG, QD
     Route: 048
  6. ALPRAZOLAM [Suspect]
     Active Substance: ALPRAZOLAM
     Route: 048
  7. MOTILIUM [Suspect]
     Active Substance: DOMPERIDONE
     Indication: Nausea
     Route: 048
  8. GLICLAZIDE [Suspect]
     Active Substance: GLICLAZIDE
     Indication: Diabetes mellitus
     Dosage: MODIFIED-RELEASE SCORED TABLET, 60 MG, QD
     Route: 048
  9. IRBESARTAN [Suspect]
     Active Substance: IRBESARTAN
     Indication: Hypertension
     Dosage: 75 MG, QD
     Route: 048
  10. ABEMACICLIB [Suspect]
     Active Substance: ABEMACICLIB
     Indication: Breast cancer
     Route: 048
     Dates: start: 202002, end: 20211011
  11. ABEMACICLIB [Suspect]
     Active Substance: ABEMACICLIB
     Route: 048
     Dates: start: 202101, end: 20211011
  12. ESOMEPRAZOLE MAGNESIUM [Suspect]
     Active Substance: ESOMEPRAZOLE MAGNESIUM
     Indication: Gastrooesophageal reflux disease
     Dosage: ENTERIC-COATED TABLET, 40 MG, QD
     Route: 048
  13. LATANOPROST\TIMOLOL MALEATE [Suspect]
     Active Substance: LATANOPROST\TIMOLOL MALEATE
     Indication: Gastrooesophageal reflux disease
     Dosage: EYE DROPS IN SOLUTION, 1 DRP, QD (DROP (1/12 MILLILITRE))
     Route: 047
  14. LATANOPROST\TIMOLOL MALEATE [Suspect]
     Active Substance: LATANOPROST\TIMOLOL MALEATE
     Indication: Ocular hypertension
  15. ANASTROZOLE [Suspect]
     Active Substance: ANASTROZOLE
     Indication: Breast cancer
     Dosage: 1 MG, QD
     Route: 048
     Dates: start: 201708

REACTIONS (3)
  - Pulmonary hypertension [Fatal]
  - Interstitial lung disease [Fatal]
  - Pneumonitis [Fatal]

NARRATIVE: CASE EVENT DATE: 20210906
